FAERS Safety Report 8337805-0 (Version None)
Quarter: 2012Q2

REPORT INFORMATION
  Report Type: 
  Country: None (occurrence: None)
  Receive Date: 20120504
  Receipt Date: 20120426
  Transmission Date: 20120825
  Serious: Yes (Death)
  Sender: FDA-Public Use
  Company Number: JP-GLAXOSMITHKLINE-B0791369A

PATIENT
  Sex: Female
  Weight: 59 kg

DRUGS (19)
  1. VOGLIBOSE [Concomitant]
     Route: 048
  2. PREDNISOLONE ACETATE [Concomitant]
     Dosage: 20MG PER DAY
     Route: 042
     Dates: start: 20111025, end: 20111103
  3. CALFINA [Concomitant]
     Route: 048
  4. RHYTHMY [Concomitant]
     Route: 048
  5. FUROSEMIDE [Concomitant]
     Dosage: 1IUAX PER DAY
     Route: 048
     Dates: start: 20111002, end: 20111007
  6. ZADITEN [Concomitant]
     Route: 031
  7. GLAKAY [Concomitant]
     Route: 048
  8. PREDNISOLONE ACETATE [Concomitant]
     Dosage: 10MG PER DAY
     Route: 048
     Dates: start: 20111021, end: 20111024
  9. TANATRIL [Concomitant]
     Dosage: 1IUAX PER DAY
     Route: 048
     Dates: start: 20111002, end: 20111007
  10. PREDNISOLONE ACETATE [Concomitant]
     Dosage: 3IUAX PER DAY
     Route: 048
     Dates: start: 20110413, end: 20111005
  11. ALDACTONE [Concomitant]
     Dosage: 1IUAX PER DAY
     Route: 048
     Dates: start: 20111002, end: 20111007
  12. MUCOSTA [Concomitant]
     Route: 048
  13. COTRIM [Concomitant]
     Dosage: 1IUAX PER DAY
     Route: 048
     Dates: start: 20110608, end: 20111005
  14. ALLEGRA [Concomitant]
     Route: 048
  15. PRAVASTATIN SODIUM [Concomitant]
     Route: 048
  16. RABEPRAZOLE SODIUM [Concomitant]
     Route: 048
  17. PROMACTA [Suspect]
     Indication: IDIOPATHIC THROMBOCYTOPENIC PURPURA
     Dosage: 12.5MG PER DAY
     Route: 048
     Dates: start: 20110817, end: 20111007
  18. MAGNESIUM OXIDE [Concomitant]
     Route: 048
  19. AMARYL [Concomitant]
     Route: 048

REACTIONS (1)
  - CEREBRAL INFARCTION [None]
